FAERS Safety Report 5955048-2 (Version None)
Quarter: 2008Q4

REPORT INFORMATION
  Report Type: 
  Country: None (occurrence: None)
  Receive Date: 20081117
  Receipt Date: 20081107
  Transmission Date: 20090506
  Serious: Yes (Other)
  Sender: FDA-Public Use
  Company Number: B0539450A

PATIENT
  Age: 63 Year
  Sex: Male

DRUGS (7)
  1. REQUIP [Suspect]
     Indication: PARKINSON'S DISEASE
     Dosage: 3MG THREE TIMES PER DAY
     Route: 048
  2. SINEMET CR [Concomitant]
     Indication: PARKINSON'S DISEASE
     Route: 048
  3. OMEPRAZOLE [Concomitant]
     Indication: GASTRITIS
     Dosage: 40MG PER DAY
     Route: 048
  4. TRIMEPRAZINE TAB [Concomitant]
     Indication: IRRITABLE BOWEL SYNDROME
     Dosage: 10MG PER DAY
     Route: 048
     Dates: start: 20080814
  5. DICYCLOVERINE [Concomitant]
     Indication: IRRITABLE BOWEL SYNDROME
     Dosage: 10MG PER DAY
     Route: 048
     Dates: start: 20080814
  6. MESALAMINE [Concomitant]
     Indication: COLITIS
     Dosage: 400MG THREE TIMES PER DAY
     Route: 048
  7. FUROSEMIDE [Concomitant]
     Dosage: 40MG PER DAY
     Route: 048

REACTIONS (3)
  - CONFUSIONAL STATE [None]
  - DOPAMINE DYSREGULATION SYNDROME [None]
  - HALLUCINATION [None]
